FAERS Safety Report 24083540 (Version 1)
Quarter: 2024Q3

REPORT INFORMATION
  Report Type: Spontaneous
  Country: FR (occurrence: FR)
  Receive Date: 20240712
  Receipt Date: 20240712
  Transmission Date: 20241016
  Serious: Yes (Other)
  Sender: SANOFI AVENTIS
  Company Number: None

PATIENT
  Age: 69 Year
  Sex: Female
  Weight: 68 kg

DRUGS (23)
  1. KARDEGIC [Suspect]
     Active Substance: ASPIRIN DL-LYSINE
     Indication: Cardiovascular event prophylaxis
     Dosage: 1 DF, QD
     Route: 048
     Dates: start: 20240508
  2. FUROSEMIDE [Suspect]
     Active Substance: FUROSEMIDE
     Indication: Oedema
     Dosage: 1 DF,VARIABLE/1 TABLET IN THE MORNING AND 1 TABLET AT LUNCHTIME
     Route: 042
     Dates: start: 20240511, end: 20240528
  3. AMLODIPINE BESYLATE [Suspect]
     Active Substance: AMLODIPINE BESYLATE
     Indication: Hypertension
     Dosage: 1 DF, QD
     Route: 048
     Dates: start: 20240511, end: 20240526
  4. CEFTRIAXONE [Suspect]
     Active Substance: CEFTRIAXONE\CEFTRIAXONE SODIUM
     Indication: Endocarditis
     Dosage: 1 G, QD
     Route: 042
     Dates: start: 20240429, end: 20240528
  5. BISOPROLOL FUMARATE [Suspect]
     Active Substance: BISOPROLOL FUMARATE
     Dosage: 1 DF, QD
  6. RAMIPRIL [Suspect]
     Active Substance: RAMIPRIL
     Dosage: 1 DF, QD
  7. NICARDIPINE [Suspect]
     Active Substance: NICARDIPINE
     Dosage: 1 DF
  8. SERTRALINE HYDROCHLORIDE [Suspect]
     Active Substance: SERTRALINE HYDROCHLORIDE
     Dosage: 2 DF, QD
  9. TAMSULOSIN HYDROCHLORIDE [Suspect]
     Active Substance: TAMSULOSIN HYDROCHLORIDE
     Dosage: 1 DF, QD
  10. LOPERAMIDE [Suspect]
     Active Substance: LOPERAMIDE
     Dosage: 1 DF
  11. LANSOPRAZOLE [Suspect]
     Active Substance: LANSOPRAZOLE
     Dosage: 1 DF, QD
  12. ACETAMINOPHEN\CODEINE PHOSPHATE [Suspect]
     Active Substance: ACETAMINOPHEN\CODEINE PHOSPHATE
     Dosage: 1 G
  13. CHOLECALCIFEROL [Suspect]
     Active Substance: CHOLECALCIFEROL
     Dosage: 1 DF, QM,ZYMAD 80 000: 1 AMPOULE/MONTH
  14. ZOLPIDEM TARTRATE [Suspect]
     Active Substance: ZOLPIDEM TARTRATE
     Dosage: 10 MG, QD,10 MG TABLET AT BEDTIME/(INTRODUCED 3 MONTHS AGO)
  15. ACETYLLEUCINE [Suspect]
     Active Substance: ACETYLLEUCINE
     Dosage: 1 DF,1 TABLET MORNING, NOON AND EVENING (INTRODUCED ON 16/11/2023)
     Dates: start: 20231116
  16. INSULIN GLARGINE [Suspect]
     Active Substance: INSULIN GLARGINE
     Dosage: UNK
  17. MORPHINE SULFATE [Suspect]
     Active Substance: MORPHINE SULFATE
     Indication: Pain
     Dosage: UNK
     Route: 048
     Dates: start: 20240510, end: 20240527
  18. HEPARIN SODIUM [Suspect]
     Active Substance: HEPARIN SODIUM
     Indication: Prophylaxis
     Dosage: UNK
     Route: 042
     Dates: start: 20240505, end: 20240521
  19. VILDAGLIPTIN [Suspect]
     Active Substance: VILDAGLIPTIN
     Indication: Diabetes mellitus
     Dosage: 50 MG, QD
     Route: 048
     Dates: start: 20240510
  20. POLYETHYLENE GLYCOL 4000 [Suspect]
     Active Substance: POLYETHYLENE GLYCOL 4000
     Indication: Constipation
     Dosage: UNK
     Route: 048
     Dates: start: 20240514
  21. ARANESP [Suspect]
     Active Substance: DARBEPOETIN ALFA
     Dosage: 1 DF
  22. URAPIDIL [Suspect]
     Active Substance: URAPIDIL
     Indication: Hypertension
     Dosage: 90 MG, QD,1 TABLET MORNING, NOON AND EVENING (REINTRODUCED ON 19/03/24)
     Route: 048
     Dates: start: 20240509
  23. KAYEXALATE [Concomitant]
     Active Substance: SODIUM POLYSTYRENE SULFONATE
     Indication: Product used for unknown indication
     Dosage: UNK
     Route: 048
     Dates: start: 20240513, end: 20240517

REACTIONS (2)
  - Rash pustular [Not Recovered/Not Resolved]
  - Eosinophilia [Not Recovered/Not Resolved]

NARRATIVE: CASE EVENT DATE: 20240517
